FAERS Safety Report 12865629 (Version 2)
Quarter: 2023Q2

REPORT INFORMATION
  Report Type: Spontaneous
  Country: KR (occurrence: KR)
  Receive Date: 20161020
  Receipt Date: 20230630
  Transmission Date: 20230722
  Serious: Yes (Hospitalization)
  Sender: FDA-Public Use
  Company Number: KR-JNJFOC-20161012038

PATIENT

DRUGS (1)
  1. REMICADE [Suspect]
     Active Substance: INFLIXIMAB
     Indication: Crohn^s disease
     Route: 064

REACTIONS (5)
  - Upper respiratory tract infection [Unknown]
  - Foetal exposure during pregnancy [Unknown]
  - Colitis [Unknown]
  - Bronchitis [Unknown]
  - Pneumonia [Unknown]
